FAERS Safety Report 15316829 (Version 1)
Quarter: 2018Q3

REPORT INFORMATION
  Report Type: Spontaneous
  Country: US (occurrence: US)
  Receive Date: 20180816
  Receipt Date: 20180816
  Transmission Date: 20181010
  Serious: Yes (Death)
  Sender: FDA-Public Use
  Company Number: None

PATIENT
  Age: 83 Year
  Sex: Female

DRUGS (1)
  1. WARFARIN [Suspect]
     Active Substance: WARFARIN

REACTIONS (7)
  - Fall [None]
  - International normalised ratio increased [None]
  - Bradycardia [None]
  - Intraventricular haemorrhage [None]
  - Asthenia [None]
  - Respiratory failure [None]
  - Brain death [None]

NARRATIVE: CASE EVENT DATE: 20170429
